FAERS Safety Report 21345750 (Version 2)
Quarter: 2022Q4

REPORT INFORMATION
  Report Type: Report from Study
  Country: DE (occurrence: DE)
  Receive Date: 20220916
  Receipt Date: 20221109
  Transmission Date: 20230113
  Serious: Yes (Hospitalization)
  Sender: FDA-Public Use
  Company Number: DE-MYLANLABS-2022M1087198

PATIENT
  Sex: Female

DRUGS (17)
  1. METHOTREXATE [Suspect]
     Active Substance: METHOTREXATE
     Indication: Rheumatoid arthritis
     Dosage: 5 MILLIGRAM ,  UNIT DOSE :  5 MG, THERAPY END DATE : ASKU
     Route: 065
     Dates: start: 20180221
  2. METHOTREXATE [Suspect]
     Active Substance: METHOTREXATE
     Dosage: 10 MILLIGRAM, UNIT DOSE :  10 MG, THERAPY END DATE : ASKU
     Route: 065
     Dates: start: 20190314
  3. METHOTREXATE [Suspect]
     Active Substance: METHOTREXATE
     Dosage: 5 MILLIGRAM , UNIT DOSE :  5 MG, THERAPY END DATE : ASKU
     Route: 065
     Dates: start: 20170504
  4. METHOTREXATE [Suspect]
     Active Substance: METHOTREXATE
     Dosage: 10 MILLIGRAM , UNIT DOSE :  10 MG, THERAPY END DATE : ASKU
     Route: 065
     Dates: start: 20200127
  5. METHOTREXATE [Suspect]
     Active Substance: METHOTREXATE
     Dosage: 5 MILLIGRAM,  UNIT DOSE :  5 MG, THERAPY END DATE : ASKU
     Route: 065
     Dates: start: 20170808
  6. METHOTREXATE [Suspect]
     Active Substance: METHOTREXATE
     Dosage: 7.5 MILLIGRAM , UNIT DOSE : 7. 5 MG, THERAPY END DATE : ASKU
     Route: 065
     Dates: start: 20180924
  7. METHOTREXATE [Suspect]
     Active Substance: METHOTREXATE
     Dosage: 10 MILLIGRAM , UNIT DOSE :  10 MG, THERAPY END DATE : ASKU
     Route: 065
     Dates: start: 20190919
  8. METHOTREXATE [Suspect]
     Active Substance: METHOTREXATE
     Dosage: 5 MILLIGRAM , UNIT DOSE :  5 MG, THERAPY END DATE : ASKU
     Route: 065
     Dates: start: 20160902
  9. METHOTREXATE [Suspect]
     Active Substance: METHOTREXATE
     Dosage: 10 MILLIGRAM, UNIT DOSE :  10 MG, THERAPY END DATE : ASKU
     Route: 065
     Dates: start: 20201110
  10. METHOTREXATE [Suspect]
     Active Substance: METHOTREXATE
     Dosage: 5 MILLIGRAM , UNIT DOSE :  5 MG, THERAPY END DATE : ASKU
     Route: 065
     Dates: start: 20170119
  11. SIMPONI [Suspect]
     Active Substance: GOLIMUMAB
     Indication: Rheumatoid arthritis
     Dosage: 50 MILLIGRAM, UNIT DOSE :  50 MG, THERAPY END DATE : NASK
     Route: 065
     Dates: start: 20170119
  12. SIMPONI [Suspect]
     Active Substance: GOLIMUMAB
     Dosage: 50 MILLIGRAM , UNIT DOSE :  50 MG, THERAPY END DATE : NASK , DURATION : 1 MONTHS
     Route: 065
     Dates: start: 20180221, end: 201803
  13. SIMPONI [Suspect]
     Active Substance: GOLIMUMAB
     Dosage: 50 MILLIGRAM, UNIT DOSE : 50 MG, THERAPY END DATE : ASKU
     Route: 065
     Dates: start: 20170808
  14. SIMPONI [Suspect]
     Active Substance: GOLIMUMAB
     Dosage: 50 MILLIGRAM, THERAPY END DATE : ASKU, UNIT DOSE :   50 MG
     Route: 065
     Dates: start: 201608
  15. SIMPONI [Suspect]
     Active Substance: GOLIMUMAB
     Dosage: 50 MILLIGRAM, THERAPY END DATE : ASKU, UNIT DOSE :   50 MG
     Route: 065
     Dates: start: 20170504
  16. RITUXIMAB [Suspect]
     Active Substance: RITUXIMAB
     Indication: Rheumatoid arthritis
     Dosage: 1000 MILLIGRAM, UNIT DOSE : 1000MG, THERAPY END DATE : ASKU
     Route: 065
     Dates: start: 201905
  17. RITUXIMAB [Suspect]
     Active Substance: RITUXIMAB
     Dosage: 1000 MILLIGRAM, UNIT DOSE : 1000MG, THERAPY END DATE : ASKU
     Route: 065
     Dates: start: 201803

REACTIONS (4)
  - Post procedural fistula [Unknown]
  - Bone sequestrum [Unknown]
  - Intervertebral disc annular tear [Not Recovered/Not Resolved]
  - Back pain [Not Recovered/Not Resolved]

NARRATIVE: CASE EVENT DATE: 20200921
